FAERS Safety Report 19011372 (Version 8)
Quarter: 2021Q2

REPORT INFORMATION
  Report Type: Spontaneous
  Country: US (occurrence: US)
  Receive Date: 20210315
  Receipt Date: 20210607
  Transmission Date: 20210717
  Serious: Yes (Other)
  Sender: FDA-Public Use
  Company Number: US-ORGANON-O2103USA001052

PATIENT
  Age: 29 Year
  Sex: Female
  Weight: 134.69 kg

DRUGS (1)
  1. NEXPLANON [Suspect]
     Active Substance: ETONOGESTREL
     Dosage: 1 IMPLANT, LEFT UPPER ARM (NOT IN DOMINANT ARM)
     Route: 059
     Dates: start: 20201119

REACTIONS (5)
  - Unintended pregnancy [Not Recovered/Not Resolved]
  - Implant site rash [Unknown]
  - Product dose omission issue [Unknown]
  - Pregnancy with implant contraceptive [Not Recovered/Not Resolved]
  - Complication associated with device [Not Recovered/Not Resolved]

NARRATIVE: CASE EVENT DATE: 202011
